FAERS Safety Report 24242284 (Version 1)
Quarter: 2024Q3

REPORT INFORMATION
  Report Type: Spontaneous
  Country: CN (occurrence: CN)
  Receive Date: 20240823
  Receipt Date: 20240823
  Transmission Date: 20241016
  Serious: Yes (Other)
  Sender: ROCHE
  Company Number: CN-CHEPLA-2024010738

PATIENT
  Age: 75 Year
  Sex: Female

DRUGS (6)
  1. XELODA [Suspect]
     Active Substance: CAPECITABINE
     Indication: Rectal cancer stage IV
     Dosage: APPROVAL NO. GYZZ H20073024 ?BID?5% GS500ML
     Route: 048
     Dates: start: 20240711, end: 20240724
  2. XELODA [Suspect]
     Active Substance: CAPECITABINE
     Indication: Metastases to liver
  3. BEVACIZUMAB [Suspect]
     Active Substance: BEVACIZUMAB
     Indication: Rectal cancer stage IV
     Dosage: D1 CHEMOTHERAPY FOR 2 CYCLES ?INTRAVENOUS DRIP
     Route: 042
     Dates: start: 20240711, end: 20240711
  4. BEVACIZUMAB [Suspect]
     Active Substance: BEVACIZUMAB
     Indication: Metastases to liver
  5. OXALIPLATIN [Suspect]
     Active Substance: OXALIPLATIN
     Indication: Rectal cancer stage IV
     Dosage: APPROVAL NO. GYZZ H20000337 ?QD?INTRAVENOUS DRIP, POWDER INJECTION, NS250ML
     Route: 042
     Dates: start: 20240711, end: 20240711
  6. OXALIPLATIN [Suspect]
     Active Substance: OXALIPLATIN
     Indication: Metastases to liver

REACTIONS (1)
  - Myelosuppression [Recovering/Resolving]

NARRATIVE: CASE EVENT DATE: 20240802
